FAERS Safety Report 6075576-1 (Version None)
Quarter: 2009Q1

REPORT INFORMATION
  Report Type: 
  Country: None (occurrence: None)
  Receive Date: 20090210
  Receipt Date: 20090210
  Transmission Date: 20090719
  Serious: Yes (Other)
  Sender: FDA-Public Use
  Company Number: None

PATIENT
  Age: 17 Year
  Sex: Male
  Weight: 77.1115 kg

DRUGS (1)
  1. MAGNEVIST [Suspect]
     Indication: DIAGNOSTIC PROCEDURE
     Dosage: 20 ML ONCE IV BOLUS
     Route: 040
     Dates: start: 20090129, end: 20090129

REACTIONS (2)
  - PRODUCT QUALITY ISSUE [None]
  - VOMITING [None]
